FAERS Safety Report 6978436-4 (Version None)
Quarter: 2010Q3

REPORT INFORMATION
  Report Type: 
  Country: None (occurrence: None)
  Receive Date: 20100908
  Receipt Date: 20100826
  Transmission Date: 20110219
  Serious: Yes (Disabling)
  Sender: FDA-Public Use
  Company Number: 2010SP046210

PATIENT
  Age: 19 Year
  Sex: Female

DRUGS (2)
  1. ELOCON [Suspect]
     Indication: ECZEMA
     Dosage: PRN; TOP
     Route: 061
     Dates: start: 19910101
  2. ELOCON [Suspect]
     Indication: ECZEMA
     Dosage: PRN; TOP
     Route: 061
     Dates: start: 19920101

REACTIONS (2)
  - DEFORMITY [None]
  - INJURY [None]
